FAERS Safety Report 5412463-3 (Version None)
Quarter: 2007Q3

REPORT INFORMATION
  Report Type: 
  Country: None (occurrence: None)
  Receive Date: 20070809
  Receipt Date: 20070726
  Transmission Date: 20080115
  Serious: Yes (Hospitalization)
  Sender: FDA-Public Use
  Company Number: M-07-0596

PATIENT
  Age: 49 Year
  Sex: Male

DRUGS (7)
  1. PACERONE [Suspect]
     Indication: ARRHYTHMIA
     Dosage: 200 MG,QD;PO
     Route: 048
     Dates: start: 20060801, end: 20070725
  2. LOPRESSOR [Concomitant]
  3. PRINIVIL [Concomitant]
  4. ZETIA [Concomitant]
  5. COUMADIN [Concomitant]
  6. GABAPENTIN [Concomitant]
  7. TYLENOL (CAPLET) [Concomitant]

REACTIONS (7)
  - BURNING SENSATION [None]
  - CHEST X-RAY ABNORMAL [None]
  - LUNG DISORDER [None]
  - NEPHROLITHIASIS [None]
  - PAIN IN EXTREMITY [None]
  - PARAESTHESIA [None]
  - PNEUMONIA BACTERIAL [None]
